FAERS Safety Report 12399933 (Version 1)
Quarter: 2016Q2

REPORT INFORMATION
  Report Type: Spontaneous
  Country: US (occurrence: US)
  Receive Date: 20160524
  Receipt Date: 20160524
  Transmission Date: 20160815
  Serious: Yes (Other)
  Sender: FDA-Public Use
  Company Number: US-FRESENIUS KABI-FK201602909

PATIENT
  Age: 22 Year
  Sex: Female

DRUGS (3)
  1. LIDOCAINE 2% (MANUFACTURER UNKNOWN) [Suspect]
     Active Substance: LIDOCAINE
     Indication: PROCEDURAL PAIN
     Route: 050
  2. LIDOCAINE 2 % (MANUFACTURER UNKNOWN) (LIDOCAINE) (LIDOCAINE) [Suspect]
     Active Substance: LIDOCAINE
     Route: 058
  3. LIDOCAINE 2 % (MANUFACTURER UNKNOWN) (LIDOCAINE) (LIDOCAINE) [Suspect]
     Active Substance: LIDOCAINE
     Route: 050

REACTIONS (4)
  - Anxiety [None]
  - Tachycardia [None]
  - Tearfulness [None]
  - Hoigne^s syndrome [Recovered/Resolved]
